FAERS Safety Report 8467544 (Version 2)
Quarter: 2012Q4

REPORT INFORMATION
  Report Type: 
  Country: DK (occurrence: FR)
  Receive Date: 20120320
  Receipt Date: 20121203
  Transmission Date: 20130627
  Serious: Yes (Disabling)
  Sender: FDA-Public Use
  Company Number: FR-FRI-1000008839

PATIENT
  Sex: Female

DRUGS (5)
  1. ESCITALOPRAM [Suspect]
     Indication: DEPRESSION
     Dosage: 10 mg
     Route: 048
     Dates: start: 200801, end: 20090707
  2. ESCITALOPRAM [Suspect]
     Indication: SOCIAL PHOBIA
  3. CITALOPRAM [Suspect]
     Indication: DEPRESSION
     Dosage: 20 mg
     Route: 048
     Dates: start: 200703, end: 200708
  4. CITALOPRAM [Suspect]
     Indication: SOCIAL PHOBIA
     Dosage: 30 mg
     Route: 048
     Dates: start: 200708, end: 200801
  5. TAMOXIFEN [Concomitant]
     Indication: BREAST NEOPLASM
     Dosage: 1 Dosage form
     Route: 048
     Dates: start: 200701, end: 200905

REACTIONS (5)
  - Dyskinesia [Recovering/Resolving]
  - Dystonia [Recovering/Resolving]
  - Dyskinesia [Recovering/Resolving]
  - Speech disorder [Recovering/Resolving]
  - Dysphagia [Recovering/Resolving]
